FAERS Safety Report 20646953 (Version 2)
Quarter: 2023Q1

REPORT INFORMATION
  Report Type: Spontaneous
  Country: PT (occurrence: PT)
  Receive Date: 20220329
  Receipt Date: 20230331
  Transmission Date: 20230418
  Serious: Yes (Life-Threatening, Hospitalization, Other)
  Sender: FDA-Public Use
  Company Number: PT-MLMSERVICE-20220321-3444269-1

PATIENT
  Age: 53 Year
  Sex: Male

DRUGS (2)
  1. AMIODARONE [Suspect]
     Active Substance: AMIODARONE
     Indication: Ventricular tachycardia
     Dosage: UNKNOWN
     Route: 065
     Dates: start: 201901, end: 201912
  2. AMIODARONE [Suspect]
     Active Substance: AMIODARONE
     Indication: Congestive cardiomyopathy
     Route: 065
     Dates: start: 201805, end: 201912

REACTIONS (9)
  - Cachexia [Recovering/Resolving]
  - Atrial fibrillation [Recovered/Resolved]
  - Congestive cardiomyopathy [Recovering/Resolving]
  - Hyperthyroidism [Recovered/Resolved]
  - Cardiac failure [Recovering/Resolving]
  - Bundle branch block right [Recovering/Resolving]
  - Arrhythmia [Recovering/Resolving]
  - Iron deficiency anaemia [Unknown]
  - Acute kidney injury [Unknown]

NARRATIVE: CASE EVENT DATE: 20200101
